FAERS Safety Report 12284881 (Version 2)
Quarter: 2016Q3

REPORT INFORMATION
  Report Type: Spontaneous
  Country: US (occurrence: US)
  Receive Date: 20160420
  Receipt Date: 20160708
  Transmission Date: 20161109
  Serious: No
  Sender: FDA-Public Use
  Company Number: US-TEVA-648789USA

PATIENT
  Age: 46 Year
  Sex: Female

DRUGS (2)
  1. ZECUITY [Suspect]
     Active Substance: SUMATRIPTAN SUCCINATE
     Route: 062
     Dates: start: 20160323, end: 20160323
  2. ZECUITY [Suspect]
     Active Substance: SUMATRIPTAN SUCCINATE
     Route: 062
     Dates: start: 20160321, end: 20160321

REACTIONS (8)
  - Product adhesion issue [Unknown]
  - Application site pruritus [Unknown]
  - Wrong technique in product usage process [Unknown]
  - Application site pain [Unknown]
  - Application site swelling [Unknown]
  - Device leakage [Unknown]
  - Application site discolouration [Unknown]
  - Application site erythema [Recovered/Resolved]

NARRATIVE: CASE EVENT DATE: 20160321
